FAERS Safety Report 25869475 (Version 3)
Quarter: 2025Q4

REPORT INFORMATION
  Report Type: Spontaneous
  Country: US (occurrence: US)
  Receive Date: 20251001
  Receipt Date: 20251103
  Transmission Date: 20260117
  Serious: No
  Sender: PFIZER
  Company Number: US-PFIZER INC-202500187510

PATIENT
  Age: 14 Year
  Sex: Male

DRUGS (3)
  1. GENOTROPIN [Suspect]
     Active Substance: SOMATROPIN
     Dosage: 2.8 MG, DAILY
  2. GENOTROPIN [Suspect]
     Active Substance: SOMATROPIN
     Dosage: 1.6 MG
  3. GENOTROPIN [Suspect]
     Active Substance: SOMATROPIN
     Dosage: 2 MG, DAILY

REACTIONS (2)
  - Poor quality device used [Unknown]
  - Device physical property issue [Unknown]
